FAERS Safety Report 4379186-3 (Version None)
Quarter: 2004Q2

REPORT INFORMATION
  Report Type: 
  Country: None (occurrence: None)
  Receive Date: 20040610
  Receipt Date: 20040526
  Transmission Date: 20050107
  Serious: Yes (Other)
  Sender: FDA-Public Use
  Company Number: M04-INT-084

PATIENT
  Age: 58 Year
  Sex: Male

DRUGS (4)
  1. INTEGRILIN [Suspect]
     Indication: CORONARY ANGIOPLASTY
     Dosage: 180 MCG/KG, IV BOLUS
     Route: 040
     Dates: start: 20040510, end: 20040510
  2. ASPIRIN [Concomitant]
  3. HEPARIN [Concomitant]
  4. TENECTEPLASE [Concomitant]

REACTIONS (9)
  - BRADYCARDIA [None]
  - FEELING ABNORMAL [None]
  - HAEMATOMA [None]
  - HYPOTENSION [None]
  - INJECTION SITE HAEMORRHAGE [None]
  - PETECHIAE [None]
  - PLATELET COUNT DECREASED [None]
  - POST PROCEDURAL COMPLICATION [None]
  - THROMBOCYTOPENIA [None]
